FAERS Safety Report 4425348-6 (Version None)
Quarter: 2004Q3

REPORT INFORMATION
  Report Type: 
  Country: None (occurrence: None)
  Receive Date: 20040812
  Receipt Date: 20040812
  Transmission Date: 20050211
  Serious: Yes (Hospitalization, Other)
  Sender: FDA-Public Use
  Company Number: None

PATIENT
  Age: 64 Year
  Sex: Male
  Weight: 89.9 kg

DRUGS (10)
  1. INTEGRILIN [Suspect]
     Indication: ANTIPLATELET THERAPY
     Dosage: 2(7.9 ML BOLUSES)7 ML/HR IV
     Route: 040
     Dates: start: 20040805, end: 20040806
  2. HEPARIN [Suspect]
     Dosage: 4, 500 UNIT BOLUSES
     Route: 040
     Dates: start: 20040805
  3. MIDAZDAM [Concomitant]
  4. FENTANYL [Concomitant]
  5. NITROGLYCERIN [Concomitant]
  6. REGULAR INSULIN [Concomitant]
  7. PROTAMINE SULFATE [Concomitant]
  8. ASPIRIN [Concomitant]
  9. CLOPIDOGREL [Concomitant]
  10. PEPCID [Concomitant]

REACTIONS (4)
  - ECCHYMOSIS [None]
  - POST PROCEDURAL COMPLICATION [None]
  - PROCEDURAL COMPLICATION [None]
  - RESUSCITATION [None]
